FAERS Safety Report 15544722 (Version 3)
Quarter: 2018Q4

REPORT INFORMATION
  Report Type: Spontaneous
  Country: US (occurrence: US)
  Receive Date: 20181024
  Receipt Date: 20181202
  Transmission Date: 20190205
  Serious: Yes (Death, Hospitalization)
  Sender: FDA-Public Use
  Company Number: US-BIOGEN-2018BI00647875

PATIENT
  Age: 5 Year
  Sex: Male

DRUGS (3)
  1. SPINRAZA [Suspect]
     Active Substance: NUSINERSEN
     Route: 037
     Dates: start: 20170202, end: 20181004
  2. SPINRAZA [Suspect]
     Active Substance: NUSINERSEN
     Indication: SPINAL MUSCULAR ATROPHY
     Route: 065
  3. SPINRAZA [Suspect]
     Active Substance: NUSINERSEN
     Route: 037

REACTIONS (5)
  - Aspiration [Fatal]
  - Unresponsive to stimuli [Fatal]
  - Cardiac arrest [Recovered/Resolved]
  - Respiratory arrest [Fatal]
  - Increased bronchial secretion [Fatal]

NARRATIVE: CASE EVENT DATE: 20181016
